FAERS Safety Report 19906622 (Version 1)
Quarter: 2021Q3

REPORT INFORMATION
  Report Type: Spontaneous
  Country: US (occurrence: US)
  Receive Date: 20210930
  Receipt Date: 20210930
  Transmission Date: 20211014
  Serious: Yes (Other)
  Sender: FDA-Public Use
  Company Number: None

PATIENT
  Age: 40 Year
  Sex: Female
  Weight: 83.91 kg

DRUGS (4)
  1. DESYREL [Suspect]
     Active Substance: TRAZODONE HYDROCHLORIDE
  2. LEXAPRO [Suspect]
     Active Substance: ESCITALOPRAM OXALATE
  3. PRAZOSIN. [Suspect]
     Active Substance: PRAZOSIN
  4. BUSPAR [Suspect]
     Active Substance: BUSPIRONE HYDROCHLORIDE

REACTIONS (4)
  - Gestational diabetes [None]
  - Maternal drugs affecting foetus [None]
  - Umbilical cord around neck [None]
  - Pregnancy [None]

NARRATIVE: CASE EVENT DATE: 20200617
